FAERS Safety Report 17624489 (Version 1)
Quarter: 2020Q2

REPORT INFORMATION
  Report Type: Report from Study
  Country: None (occurrence: US)
  Receive Date: 20200403
  Receipt Date: 20200403
  Transmission Date: 20200713
  Serious: No
  Sender: FDA-Public Use
  Company Number: US-BIOVITRUM-2019US1154

PATIENT
  Sex: Female

DRUGS (2)
  1. ORFADIN [Suspect]
     Active Substance: NITISINONE
     Dosage: TWO 10MG CAPS IN AM AND TWO 10MG CAPS IN PM
     Route: 048
     Dates: start: 201906
  2. ORFADIN [Suspect]
     Active Substance: NITISINONE
     Indication: TYROSINAEMIA
     Dosage: 4 CAPSULES TWICE IN A DAY
     Route: 048
     Dates: start: 20140403

REACTIONS (7)
  - Intentional product use issue [Unknown]
  - Eye pain [Unknown]
  - Nausea [Unknown]
  - Malaise [Unknown]
  - Decreased appetite [Unknown]
  - Amino acid level increased [Unknown]
  - Weight decreased [Unknown]

NARRATIVE: CASE EVENT DATE: 2019
